FAERS Safety Report 7156086-7 (Version None)
Quarter: 2010Q4

REPORT INFORMATION
  Report Type: 
  Country: None (occurrence: None)
  Receive Date: 20101214
  Receipt Date: 20101203
  Transmission Date: 20110411
  Serious: Yes (Other)
  Sender: FDA-Public Use
  Company Number: JP-PFIZER INC-2010164328

PATIENT
  Age: 78 Year
  Sex: Male

DRUGS (5)
  1. LYRICA [Suspect]
     Indication: POST HERPETIC NEURALGIA
     Dosage: 75 MG, 2X/DAY
     Route: 048
     Dates: start: 20100701, end: 20100701
  2. LYRICA [Suspect]
     Dosage: 75 MG, 1X/DAY
     Route: 048
     Dates: start: 20100729, end: 20100801
  3. LYRICA [Suspect]
     Dosage: 75 MG, 2X/DAY
     Route: 048
     Dates: start: 20100826
  4. ZOLOFT [Concomitant]
     Indication: NEURALGIA
     Dosage: 25 MG, 1X/DAY
     Dates: start: 20090722, end: 20101104
  5. MYSLEE [Concomitant]
     Indication: INSOMNIA
     Dosage: 10 MG, 1X/DAY
     Dates: start: 20090722

REACTIONS (2)
  - PARKINSONIAN GAIT [None]
  - URINARY INCONTINENCE [None]
